FAERS Safety Report 17982223 (Version 1)
Quarter: 2020Q3

REPORT INFORMATION
  Report Type: Spontaneous
  Country: JP (occurrence: JP)
  Receive Date: 20200706
  Receipt Date: 20200706
  Transmission Date: 20201103
  Serious: Yes (Other)
  Sender: FDA-Public Use
  Company Number: NVSJ2020JP006407

PATIENT
  Age: 85 Year
  Sex: Male

DRUGS (1)
  1. EQUMET [Suspect]
     Active Substance: METFORMIN HYDROCHLORIDE\VILDAGLIPTIN
     Indication: PRODUCT USED FOR UNKNOWN INDICATION
     Dosage: UNK, METFORMIN HYDROCHLORIDE UNKNOWN/VILDAGLIPTIN 50MG
     Route: 048

REACTIONS (3)
  - Shock [Unknown]
  - Lactic acidosis [Unknown]
  - Renal disorder [Unknown]
